FAERS Safety Report 7715042-8 (Version None)
Quarter: 2011Q3

REPORT INFORMATION
  Report Type: 
  Country: None (occurrence: None)
  Receive Date: 20110829
  Receipt Date: 20110629
  Transmission Date: 20111222
  Serious: No
  Sender: FDA-Public Use
  Company Number: US-ASTRAZENECA-2011SE37205

PATIENT
  Age: 76 Year
  Sex: Male

DRUGS (5)
  1. ENABLEX [Concomitant]
  2. WELLBUTRIN [Concomitant]
  3. VIMOVO [Suspect]
     Indication: BACK PAIN
     Dosage: 500 MG / 20 MG, TWO TIMES A DAY
     Route: 048
  4. VIMOVO [Suspect]
     Indication: ARTHRITIS
     Dosage: 500 MG / 20 MG, TWO TIMES A DAY
     Route: 048
  5. LOTRIL [Concomitant]

REACTIONS (2)
  - BACK PAIN [None]
  - DRUG INEFFECTIVE [None]
